FAERS Safety Report 23910125 (Version 2)
Quarter: 2024Q2

REPORT INFORMATION
  Report Type: Spontaneous
  Country: ES (occurrence: ES)
  Receive Date: 20240528
  Receipt Date: 20240610
  Transmission Date: 20240717
  Serious: Yes (Other)
  Sender: FDA-Public Use
  Company Number: ES-BIOVITRUM-2024-ES-004362

PATIENT

DRUGS (11)
  1. PEGCETACOPLAN [Suspect]
     Active Substance: PEGCETACOPLAN
     Indication: Paroxysmal nocturnal haemoglobinuria
     Dosage: 1080MG, TWICE WEEK, ON MONDAYS AND?THURSDAYS
     Route: 058
     Dates: start: 20240304, end: 20240311
  2. PEGCETACOPLAN [Suspect]
     Active Substance: PEGCETACOPLAN
     Dosage: 1080MG, TWICE WEEK, ON MONDAYS AND?THURSDAYS
     Route: 058
     Dates: start: 20221219
  3. FOLIC ACID [Concomitant]
     Active Substance: FOLIC ACID
     Indication: Product used for unknown indication
     Dosage: EVERY 24 HOURS (EMPTY STOMACH) (SATURDAYS AND SUNDAYS)
  4. BISOPROLOL [Concomitant]
     Active Substance: BISOPROLOL\BISOPROLOL FUMARATE
     Indication: Product used for unknown indication
     Dosage: 1 TABLET WITH BREAKFAST
  5. AMLODIPINE [Concomitant]
     Active Substance: AMLODIPINE BESYLATE
     Indication: Product used for unknown indication
     Dosage: ONE TABLET DAILY AT NIGHT
  6. ALLOPURINOL [Concomitant]
     Active Substance: ALLOPURINOL
     Indication: Product used for unknown indication
     Dosage: ONE TABLET DAILY
  7. MICARDIS [Concomitant]
     Active Substance: TELMISARTAN
     Indication: Product used for unknown indication
     Dosage: REDUCED TO HALF WITH BREAKFAST
  8. ASPIRIN [Concomitant]
     Active Substance: ASPIRIN
     Indication: Product used for unknown indication
     Dosage: 1 TABLET/MEAL
  9. ISOSORBIDE MONONITRATE [Concomitant]
     Active Substance: ISOSORBIDE MONONITRATE
     Indication: Product used for unknown indication
     Dosage: 1 TABLET/BREAKFAST
  10. ATORVASTATIN [Concomitant]
     Active Substance: ATORVASTATIN
     Indication: Product used for unknown indication
     Dosage: 1 EVERY NIGHT
  11. Magnogene [Concomitant]
     Indication: Product used for unknown indication
     Dosage: 1 TABLET, WITH BREAKFAST AND DINNER
     Route: 048
     Dates: start: 20221028

REACTIONS (3)
  - Breakthrough haemolysis [Recovered/Resolved]
  - Drug ineffective [Unknown]
  - Upper respiratory tract infection [Recovered/Resolved]

NARRATIVE: CASE EVENT DATE: 20240101
